FAERS Safety Report 7179468 (Version 2)
Quarter: 2014Q4

REPORT INFORMATION
  Report Type: Spontaneous
  Country: FR (occurrence: BE)
  Receive Date: 20091117
  Receipt Date: 20141015
  Transmission Date: 20150529
  Serious: Yes (Hospitalization, Other)
  Sender: FDA-Public Use
  Company Number: FR-MYLANLABS-2008S1019233

PATIENT

DRUGS (12)
  1. MERCAPTAMINE BITARTRATE [Suspect]
     Active Substance: CYSTEAMINE
     Dosage: UNK UNK,QD
     Dates: start: 20001228
  2. MERCAPTAMINE BITARTRATE [Suspect]
     Active Substance: CYSTEAMINE
     Dosage: UNK UNK,QD
  3. OMEPRAZOLE. [Concomitant]
     Active Substance: OMEPRAZOLE
     Dosage: 20 MG, QD
     Dates: start: 200303, end: 200510
  4. MERCAPTAMINE BITARTRATE [Suspect]
     Active Substance: CYSTEAMINE
     Dosage: 61.2 MG/KG,QD
  5. MERCAPTAMINE BITARTRATE [Suspect]
     Active Substance: CYSTEAMINE
     Dosage: 65 MG/KG,QD
  6. MERCAPTAMINE BITARTRATE [Suspect]
     Active Substance: CYSTEAMINE
     Dosage: 63 MG/KG, QID
  7. MERCAPTAMINE BITARTRATE [Suspect]
     Active Substance: CYSTEAMINE
     Dosage: 18 MG/KG, QID
     Route: 048
  8. MERCAPTAMINE BITARTRATE [Suspect]
     Active Substance: CYSTEAMINE
     Dosage: 60 MG/KG, QID
  9. MERCAPTAMINE BITARTRATE [Suspect]
     Active Substance: CYSTEAMINE
     Dosage: 65 MG/KG, QID
  10. MERCAPTAMINE BITARTRATE [Suspect]
     Active Substance: CYSTEAMINE
     Dosage: 15 MG/KG, QID
     Route: 048
  11. MERCAPTAMINE BITARTRATE [Suspect]
     Active Substance: CYSTEAMINE
     Dosage: 15.3 MG/KG, QID
     Route: 048
  12. MERCAPTAMINE BITARTRATE [Suspect]
     Active Substance: CYSTEAMINE
     Indication: CYSTINOSIS
     Dosage: 72 MG/KG,QD

REACTIONS (10)
  - Diarrhoea [Recovered/Resolved]
  - Nausea [Not Recovered/Not Resolved]
  - Conjunctivitis [Recovered/Resolved]
  - Vomiting [Not Recovered/Not Resolved]
  - Viral infection [Recovered/Resolved]
  - Hypersomnia [Recovered/Resolved]
  - Fatigue [Not Recovered/Not Resolved]
  - Asthenia [Recovered/Resolved]
  - Decreased appetite [Recovered/Resolved]
  - Pharyngitis [Recovered/Resolved]

NARRATIVE: CASE EVENT DATE: 2003
